FAERS Safety Report 4745216-X (Version None)
Quarter: 2005Q3

REPORT INFORMATION
  Report Type: 
  Country: None (occurrence: None)
  Receive Date: 20050812
  Receipt Date: 20050804
  Transmission Date: 20060218
  Serious: Yes (Death)
  Sender: FDA-Public Use
  Company Number: GB-2005-000677

PATIENT
  Age: 66 Year
  Sex: Female
  Weight: 78 kg

DRUGS (3)
  1. FLUDARABINE PHOSPHATE [Suspect]
     Indication: CHRONIC LYMPHOCYTIC LEUKAEMIA
     Dosage: 80 MG ORAL
     Route: 048
     Dates: start: 20050111, end: 20050113
  2. CYCLOPHOSPHAMIDE [Suspect]
     Indication: CHRONIC LYMPHOCYTIC LEUKAEMIA
     Dosage: 500 MG ORAL
     Route: 048
     Dates: start: 20050111, end: 20050113
  3. DOMPERIDONE (DOMPERIDONE) [Concomitant]

REACTIONS (6)
  - CARDIAC ARREST [None]
  - CHRONIC LYMPHOCYTIC LEUKAEMIA [None]
  - LYMPHADENOPATHY [None]
  - MALIGNANT NEOPLASM PROGRESSION [None]
  - RENAL FAILURE [None]
  - TUMOUR LYSIS SYNDROME [None]
